FAERS Safety Report 23480510 (Version 1)
Quarter: 2024Q1

REPORT INFORMATION
  Report Type: Spontaneous
  Country: US (occurrence: US)
  Receive Date: 20240205
  Receipt Date: 20240205
  Transmission Date: 20240410
  Serious: No
  Sender: FDA-Public Use
  Company Number: US-APOTEX-2023AP013626

PATIENT
  Sex: Female

DRUGS (2)
  1. DESMOPRESSIN ACETATE [Suspect]
     Active Substance: DESMOPRESSIN ACETATE
     Indication: Product used for unknown indication
     Dosage: 1 SPRAY IN EACH NOSTRIL TWICE A DAY
     Route: 045
  2. DESMOPRESSIN ACETATE [Suspect]
     Active Substance: DESMOPRESSIN ACETATE
     Dosage: 1 SPRAY IN EACH NOSTRIL TWICE A DAY
     Route: 045

REACTIONS (4)
  - Product closure issue [Unknown]
  - Product substitution issue [Unknown]
  - Drug ineffective [Unknown]
  - Therapeutic response shortened [Unknown]
